FAERS Safety Report 14920174 (Version 1)
Quarter: 2018Q2

REPORT INFORMATION
  Report Type: Spontaneous
  Country: US (occurrence: US)
  Receive Date: 20180521
  Receipt Date: 20180521
  Transmission Date: 20180711
  Serious: Yes (Hospitalization)
  Sender: FDA-Public Use
  Company Number: US-CHURCH + DWIGHT CO., INC.-2048153

PATIENT
  Sex: Male

DRUGS (1)
  1. ARRID EXTRA DRY ANTIPERSPIRANT DEODORANT MORNING CLEAN [Suspect]
     Active Substance: ALUMINUM ZIRCONIUM TETRACHLOROHYDREX GLY
     Route: 061
     Dates: start: 20180505, end: 20180507

REACTIONS (3)
  - Swelling [None]
  - Infection [Recovered/Resolved]
  - Burning sensation [None]

NARRATIVE: CASE EVENT DATE: 20180505
